FAERS Safety Report 6368883-6 (Version None)
Quarter: 2009Q3

REPORT INFORMATION
  Report Type: 
  Country: None (occurrence: None)
  Receive Date: 20090918
  Receipt Date: 20090918
  Transmission Date: 20100115
  Serious: Yes (Disabling)
  Sender: FDA-Public Use
  Company Number: None

PATIENT
  Age: 89 Year
  Sex: Female
  Weight: 52.1637 kg

DRUGS (1)
  1. BONIVA [Suspect]
     Indication: MINERAL SUPPLEMENTATION
     Dosage: 1 MONTHLY PO
     Route: 048
     Dates: start: 20080101, end: 20090430

REACTIONS (3)
  - BLOODY DISCHARGE [None]
  - DEFORMITY [None]
  - OSTEOMYELITIS [None]
